FAERS Safety Report 4993453-1 (Version None)
Quarter: 2006Q2

REPORT INFORMATION
  Report Type: 
  Country: None (occurrence: None)
  Receive Date: 20060504
  Receipt Date: 20060504
  Transmission Date: 20061013
  Serious: No
  Sender: FDA-Public Use
  Company Number: None

PATIENT
  Sex: Female
  Weight: 48.0813 kg

DRUGS (1)
  1. BENADRYL [Suspect]
     Indication: ANXIETY
     Dosage: 25 MG BID PO
     Route: 048
     Dates: start: 20060227, end: 20060228

REACTIONS (3)
  - PHARYNGEAL OEDEMA [None]
  - RASH [None]
  - THROAT TIGHTNESS [None]
